FAERS Safety Report 6837784-9 (Version None)
Quarter: 2010Q3

REPORT INFORMATION
  Report Type: 
  Country: None (occurrence: None)
  Receive Date: 20100713
  Receipt Date: 20070518
  Transmission Date: 20110219
  Serious: No
  Sender: FDA-Public Use
  Company Number: US-PFIZER INC-2007041606

PATIENT
  Sex: Female
  Weight: 59.09 kg

DRUGS (7)
  1. CHANTIX [Suspect]
     Indication: SMOKING CESSATION THERAPY
     Dosage: 0.5 MG  EVERY DAY
     Route: 048
     Dates: start: 20070501
  2. NIFEDIPINE [Concomitant]
  3. LEXAPRO [Concomitant]
  4. TRAZODONE HYDROCHLORIDE [Concomitant]
  5. SYNTHROID [Concomitant]
  6. DIURETICS [Concomitant]
  7. PLAQUENIL [Concomitant]

REACTIONS (3)
  - CONSTIPATION [None]
  - FLATULENCE [None]
  - NAUSEA [None]
